FAERS Safety Report 23004345 (Version 3)
Quarter: 2024Q2

REPORT INFORMATION
  Report Type: Spontaneous
  Country: CA (occurrence: CA)
  Receive Date: 20230928
  Receipt Date: 20240606
  Transmission Date: 20240715
  Serious: Yes (Hospitalization, Other)
  Sender: FDA-Public Use
  Company Number: CA-002147023-PHHY2016CA033849

PATIENT
  Age: 75 Year
  Sex: Male

DRUGS (20)
  1. MONTELUKAST [Suspect]
     Active Substance: MONTELUKAST SODIUM
     Indication: Product used for unknown indication
     Dosage: UNK
     Route: 065
  2. XOLAIR [Suspect]
     Active Substance: OMALIZUMAB
     Dosage: UNK
     Route: 058
     Dates: start: 20160725
  3. XOLAIR [Suspect]
     Active Substance: OMALIZUMAB
     Dosage: UNK
     Route: 058
     Dates: start: 20170123
  4. XOLAIR [Suspect]
     Active Substance: OMALIZUMAB
     Dosage: UNK
     Route: 058
     Dates: start: 20161228
  5. XOLAIR [Suspect]
     Active Substance: OMALIZUMAB
     Indication: Asthma
     Dosage: 375 MG, Q2W
     Route: 058
     Dates: start: 20160307
  6. XOLAIR [Suspect]
     Active Substance: OMALIZUMAB
     Dosage: UNK
     Route: 058
     Dates: start: 20160321
  7. XOLAIR [Suspect]
     Active Substance: OMALIZUMAB
     Dosage: UNK
     Route: 058
     Dates: start: 20160404
  8. XOLAIR [Suspect]
     Active Substance: OMALIZUMAB
     Dosage: 375 MG, Q2W
     Route: 058
     Dates: start: 20180712
  9. XOLAIR [Suspect]
     Active Substance: OMALIZUMAB
     Dosage: UNK
     Route: 058
     Dates: start: 20170406
  10. XOLAIR [Suspect]
     Active Substance: OMALIZUMAB
     Dosage: 375 MG, Q2W
     Route: 058
     Dates: start: 20181115
  11. XOLAIR [Suspect]
     Active Substance: OMALIZUMAB
     Dosage: UNK
     Route: 058
     Dates: start: 20171214
  12. XOLAIR [Suspect]
     Active Substance: OMALIZUMAB
     Dosage: 375 MG, Q2W
     Route: 065
  13. XOLAIR [Suspect]
     Active Substance: OMALIZUMAB
     Dosage: 375 MG, Q2W
     Route: 058
     Dates: start: 20180503
  14. XOLAIR [Suspect]
     Active Substance: OMALIZUMAB
     Dosage: 375 MG, Q2W
     Route: 058
     Dates: start: 20181227
  15. XOLAIR [Suspect]
     Active Substance: OMALIZUMAB
     Dosage: 375 MG, Q2W
     Route: 058
  16. ATARAX [Concomitant]
     Active Substance: HYDROXYZINE HYDROCHLORIDE
     Indication: Product used for unknown indication
     Dosage: 1 DF, QD
     Route: 065
  17. PREDNISONE [Concomitant]
     Active Substance: PREDNISONE
     Indication: Product used for unknown indication
     Route: 065
  18. SPIRIVA [Concomitant]
     Active Substance: TIOTROPIUM BROMIDE MONOHYDRATE
     Indication: Product used for unknown indication
     Dosage: UNK
     Route: 065
  19. VENTOLIN [Concomitant]
     Active Substance: ALBUTEROL SULFATE
     Indication: Product used for unknown indication
     Dosage: UNK
     Route: 065
  20. ZENHALE [Concomitant]
     Active Substance: FORMOTEROL FUMARATE\MOMETASONE FUROATE
     Indication: Product used for unknown indication
     Dosage: 4 DF, QID
     Route: 065

REACTIONS (18)
  - Asthma [Recovering/Resolving]
  - Dyspnoea [Recovering/Resolving]
  - Pneumonia [Unknown]
  - Benign prostatic hyperplasia [Unknown]
  - Renal cancer [Unknown]
  - Sputum discoloured [Unknown]
  - Influenza [Unknown]
  - Weight decreased [Unknown]
  - Decreased appetite [Unknown]
  - Balance disorder [Unknown]
  - Coordination abnormal [Unknown]
  - Dizziness [Not Recovered/Not Resolved]
  - Fatigue [Recovered/Resolved]
  - Headache [Recovered/Resolved]
  - Cough [Unknown]
  - Fatigue [Unknown]
  - Cardiac disorder [Unknown]
  - Wrong technique in product usage process [Unknown]

NARRATIVE: CASE EVENT DATE: 20160301
